FAERS Safety Report 12280199 (Version 1)
Quarter: 2016Q2

REPORT INFORMATION
  Report Type: Other
  Country: IN (occurrence: IN)
  Receive Date: 20160419
  Receipt Date: 20160419
  Transmission Date: 20160815
  Serious: Yes (Life-Threatening)
  Sender: FDA-Public Use
  Company Number: IN-ORCHID HEALTHCARE-1050698

PATIENT
  Age: 28 Year
  Sex: Male

DRUGS (2)
  1. OLANZAPINE. [Suspect]
     Active Substance: OLANZAPINE
     Indication: BIPOLAR DISORDER
     Route: 065
  2. LORAZEPAM. [Concomitant]
     Active Substance: LORAZEPAM
     Route: 065

REACTIONS (5)
  - Hypercholesterolaemia [Unknown]
  - Eosinophilia [Unknown]
  - Generalised oedema [Unknown]
  - Cardiomyopathy [Recovering/Resolving]
  - Cardiac failure [Recovering/Resolving]
